FAERS Safety Report 14303957 (Version 1)
Quarter: 2017Q4

REPORT INFORMATION
  Report Type: Spontaneous
  Country: JP (occurrence: JP)
  Receive Date: 20171219
  Receipt Date: 20171219
  Transmission Date: 20180321
  Serious: Yes (Other)
  Sender: FDA-Public Use
  Company Number: JP-OTSUKA-JP-2012-16729

PATIENT
  Sex: Male
  Weight: 47 kg

DRUGS (8)
  1. LIMAS [Concomitant]
     Active Substance: LITHIUM CARBONATE
     Dosage: 100 MG, QD
     Route: 048
  2. LEVOMEPROMAZINE [Concomitant]
     Active Substance: LEVOMEPROMAZINE
     Dosage: TABS.
  3. VOGLIBOSE [Suspect]
     Active Substance: VOGLIBOSE
     Dosage: 0.3 MG, QD
     Route: 048
  4. BENZALIN [Concomitant]
     Active Substance: NITRAZEPAM
     Dosage: 5 MG, QD
     Route: 048
  5. ABILIFY [Suspect]
     Active Substance: ARIPIPRAZOLE
     Indication: PSYCHIATRIC SYMPTOM
     Dosage: 6 MG, TID
     Route: 048
     Dates: start: 20120717, end: 20121004
  6. BAYASPIRIN [Concomitant]
     Active Substance: ASPIRIN
     Dosage: 100 MG, QD
     Route: 048
  7. STANZOME [Concomitant]
     Active Substance: LANSOPRAZOLE
     Dosage: 15 MG, QD
     Route: 048
  8. HIRNAMIN [Concomitant]
     Active Substance: PHENOTHIAZINE
     Dosage: 5 MG, QD
     Route: 048

REACTIONS (1)
  - Liver disorder [Recovering/Resolving]

NARRATIVE: CASE EVENT DATE: 20121002
